FAERS Safety Report 17508485 (Version 1)
Quarter: 2020Q1

REPORT INFORMATION
  Report Type: Spontaneous
  Country: IT (occurrence: IT)
  Receive Date: 20200306
  Receipt Date: 20200306
  Transmission Date: 20200409
  Serious: Yes (Death, Life-Threatening, Other)
  Sender: FDA-Public Use
  Company Number: IT-TEVA-749555ACC

PATIENT
  Age: 14 Year
  Sex: Female

DRUGS (2)
  1. VINORELBINE [Suspect]
     Active Substance: VINORELBINE TARTRATE
     Indication: SYNOVIAL SARCOMA RECURRENT
     Dosage: 2 CYCLES
     Route: 065
  2. GEMCITABINE. [Suspect]
     Active Substance: GEMCITABINE
     Indication: SYNOVIAL SARCOMA RECURRENT
     Dosage: 2 CYCLES
     Route: 065

REACTIONS (4)
  - Death [Fatal]
  - Off label use [Unknown]
  - Drug ineffective [Unknown]
  - Product use in unapproved indication [Unknown]
